FAERS Safety Report 5883719-5 (Version None)
Quarter: 2008Q3

REPORT INFORMATION
  Report Type: 
  Country: None (occurrence: None)
  Receive Date: 20080912
  Receipt Date: 20080905
  Transmission Date: 20090109
  Serious: No
  Sender: FDA-Public Use
  Company Number: 08H-028-0314865-00

PATIENT
  Age: 57 Year
  Sex: Male

DRUGS (1)
  1. HEPARIN SODIUM [Suspect]
     Indication: DRUG USE FOR UNKNOWN INDICATION
     Dosage: 22,000 UNITS, CONTINUOS, INTRAVENOUS
     Route: 042
     Dates: start: 20080801, end: 20080815

REACTIONS (4)
  - ACTIVATED PARTIAL THROMBOPLASTIN TIME PROLONGED [None]
  - DRUG ADMINISTRATION ERROR [None]
  - INCORRECT DRUG ADMINISTRATION RATE [None]
  - OVERDOSE [None]
